FAERS Safety Report 13716898 (Version 1)
Quarter: 2017Q3

REPORT INFORMATION
  Report Type: Spontaneous
  Country: US (occurrence: US)
  Receive Date: 20170703
  Receipt Date: 20170703
  Transmission Date: 20171127
  Serious: Yes (Disabling)
  Sender: FDA-Public Use
  Company Number: None

PATIENT
  Age: 49 Year
  Sex: Female
  Weight: 75.6 kg

DRUGS (10)
  1. LEVAQUIN [Suspect]
     Active Substance: LEVOFLOXACIN
     Indication: SINUSITIS
     Route: 048
     Dates: start: 20070101, end: 20170104
  2. VITAMIN B12 [Concomitant]
     Active Substance: CYANOCOBALAMIN
  3. ADVAIR HFA [Concomitant]
     Active Substance: FLUTICASONE PROPIONATE\SALMETEROL XINAFOATE
  4. ZYRTEC [Concomitant]
     Active Substance: CETIRIZINE HYDROCHLORIDE
  5. FISH OIL [Concomitant]
     Active Substance: FISH OIL
  6. TEQUIN [Suspect]
     Active Substance: GATIFLOXACIN
  7. MULTI VITAMIN [Concomitant]
     Active Substance: VITAMINS
  8. ESTRADIOL. [Concomitant]
     Active Substance: ESTRADIOL
  9. CIPRO [Suspect]
     Active Substance: CIPROFLOXACIN HYDROCHLORIDE
  10. AVELOX [Suspect]
     Active Substance: MOXIFLOXACIN HYDROCHLORIDE

REACTIONS (8)
  - Pain in extremity [None]
  - Muscle tightness [None]
  - Paraesthesia [None]
  - Hypoaesthesia [None]
  - Gait disturbance [None]
  - Muscle disorder [None]
  - Burning sensation [None]
  - Formication [None]

NARRATIVE: CASE EVENT DATE: 20150615
